FAERS Safety Report 6314482-1 (Version None)
Quarter: 2009Q3

REPORT INFORMATION
  Report Type: 
  Country: None (occurrence: None)
  Receive Date: 20090819
  Receipt Date: 20090813
  Transmission Date: 20100115
  Serious: Yes (Other)
  Sender: FDA-Public Use
  Company Number: GB-B.I. PHARMACEUTICALS,INC./RIDGEFIELD-2009-UK-00726UK

PATIENT
  Age: 77 Year
  Sex: Female

DRUGS (12)
  1. SPIRIVA [Suspect]
     Indication: CHRONIC OBSTRUCTIVE PULMONARY DISEASE
     Dosage: 1 OD
  2. SALBUTAMOL [Concomitant]
     Dosage: INHALER 100MCG 2 PUFFS PRN
  3. SALBUTAMOL [Concomitant]
     Dosage: 10 MG
  4. OXYGEN [Concomitant]
     Dosage: VIA CONCENTRATOR 2 LITRES/MIN
  5. OXYGEN [Concomitant]
     Dosage: VIA CONCENTRATOR 3 LITRES/MIN
  6. PREDNISOLONE [Concomitant]
     Dosage: 5 MG
  7. PREDNISOLONE [Concomitant]
     Dosage: 30 MG
  8. CARBOCISTEINE [Concomitant]
     Dosage: 2250 MG
  9. THEOPHYLLINE [Concomitant]
     Dosage: 400 MG
  10. ADCAL D3 [Concomitant]
     Dosage: 1 TAB BD
  11. FUROSEMIDE [Concomitant]
     Dosage: 20 MG
  12. QVAR 40 [Concomitant]
     Dosage: 400 MCG

REACTIONS (1)
  - CHRONIC OBSTRUCTIVE PULMONARY DISEASE [None]
